FAERS Safety Report 7639160-8 (Version None)
Quarter: 2011Q3

REPORT INFORMATION
  Report Type: 
  Country: None (occurrence: None)
  Receive Date: 20110721
  Receipt Date: 20110708
  Transmission Date: 20111222
  Serious: Yes (Life-Threatening, Other)
  Sender: FDA-Public Use
  Company Number: FK201101352

PATIENT
  Age: 66 Year
  Sex: Female

DRUGS (4)
  1. XYLOCAINE W/ EPINEPHRENE [Suspect]
     Indication: PRODUCT USED FOR UNKNOWN INDICATION
     Dosage: 40 ML, 0.5%
  2. DYAZIDE [Concomitant]
  3. DIAZEPAM [Concomitant]
  4. PROPRANOLOL [Suspect]
     Indication: HYPERTENSION
     Dosage: 10 MG, BID
     Route: 042

REACTIONS (3)
  - DRUG INTERACTION [None]
  - TACHYCARDIA [None]
  - HYPERTENSION [None]
